FAERS Safety Report 7493964-3 (Version None)
Quarter: 2011Q2

REPORT INFORMATION
  Report Type: 
  Country: None (occurrence: None)
  Receive Date: 20110520
  Receipt Date: 20110509
  Transmission Date: 20111010
  Serious: Yes (Hospitalization)
  Sender: FDA-Public Use
  Company Number: US-CELGENEUS-163-21880-11050960

PATIENT
  Sex: Male

DRUGS (3)
  1. REVLIMID [Suspect]
     Indication: MULTIPLE MYELOMA
     Dosage: 25 MILLIGRAM
     Route: 048
     Dates: start: 20101201
  2. LISINOPRIL [Concomitant]
     Indication: BLOOD PRESSURE
     Route: 065
  3. DECADRON [Concomitant]
     Dosage: 20 MILLIGRAM
     Route: 065

REACTIONS (2)
  - CHEST PAIN [None]
  - BLOOD POTASSIUM ABNORMAL [None]
